FAERS Safety Report 5006984-5 (Version None)
Quarter: 2006Q1

REPORT INFORMATION
  Report Type: 
  Country: None (occurrence: None)
  Receive Date: 20060320
  Receipt Date: 20050907
  Transmission Date: 20060701
  Serious: Yes (Hospitalization, Other)
  Sender: FDA-Public Use
  Company Number: 2005-09-0383

PATIENT
  Age: 42 Year
  Sex: Male
  Weight: 97.977 kg

DRUGS (3)
  1. PEG-INTRON [Suspect]
     Indication: HEPATITIS C
     Dosage: 150MCG SUBCUTANEOUS
     Route: 058
     Dates: start: 20050526, end: 20050822
  2. RIBAVIRIN [Suspect]
     Indication: HEPATITIS C
     Dosage: 600MG BID ORAL
     Route: 048
     Dates: start: 20050526, end: 20050822
  3. MARIJUANA [Suspect]
     Dosage: INHALATION
     Route: 055
     Dates: start: 20050822

REACTIONS (4)
  - AGITATION [None]
  - DRUG DEPENDENCE [None]
  - HALLUCINATION [None]
  - PSYCHOTIC DISORDER [None]
